FAERS Safety Report 4766388-7 (Version None)
Quarter: 2005Q3

REPORT INFORMATION
  Report Type: 
  Country: None (occurrence: None)
  Receive Date: 20050909
  Receipt Date: 20050826
  Transmission Date: 20060218
  Serious: Yes (Life-Threatening)
  Sender: FDA-Public Use
  Company Number: SUSI-2005-00589

PATIENT
  Age: 34 Year
  Sex: Female

DRUGS (3)
  1. PENTASA [Suspect]
     Indication: COLITIS ULCERATIVE
     Dosage: 1500 MG DAILY, ORAL
     Route: 048
     Dates: start: 20050603, end: 20050706
  2. OMEPRAZOLE [Concomitant]
  3. PREDNISOLONE [Concomitant]

REACTIONS (3)
  - BONE MARROW DEPRESSION [None]
  - PANCYTOPENIA [None]
  - SEPSIS [None]
